FAERS Safety Report 8457715-8 (Version None)
Quarter: 2012Q2

REPORT INFORMATION
  Report Type: 
  Country: None (occurrence: None)
  Receive Date: 20120618
  Receipt Date: 20120618
  Transmission Date: 20120825
  Serious: Yes (Other)
  Sender: FDA-Public Use
  Company Number: None

PATIENT
  Age: 57 Year
  Sex: Female
  Weight: 54.4316 kg

DRUGS (1)
  1. LEVAQUIN [Suspect]
     Indication: EAR INFECTION
     Dosage: 500MG 1 PER DAY PO
     Route: 048
     Dates: start: 20111220, end: 20111230

REACTIONS (7)
  - INSOMNIA [None]
  - MYALGIA [None]
  - PAIN IN JAW [None]
  - APHAGIA [None]
  - ACTIVITIES OF DAILY LIVING IMPAIRED [None]
  - IMPAIRED WORK ABILITY [None]
  - EAR PAIN [None]
